FAERS Safety Report 4505301-4 (Version None)
Quarter: 2004Q4

REPORT INFORMATION
  Report Type: 
  Country: None (occurrence: None)
  Receive Date: 20041014
  Receipt Date: 20041014
  Transmission Date: 20050328
  Serious: Yes (Other)
  Sender: FDA-Public Use
  Company Number: MP03-187

PATIENT
  Age: 71 Year
  Sex: Female
  Weight: 58 kg

DRUGS (11)
  1. BACTRIM DS [Suspect]
     Indication: URINARY TRACT INFECTION
     Dosage: 1 TABLET PER DAY, ORAL
     Route: 048
     Dates: start: 20030607, end: 20030612
  2. EPOGEN [Concomitant]
  3. LOPRESSOR [Concomitant]
  4. IMDUR [Concomitant]
  5. LASIX [Concomitant]
  6. INSULIN [Concomitant]
  7. AMBIEN [Concomitant]
  8. NORTRYPTELINE [Concomitant]
  9. TYLENOL (CAPLET) [Concomitant]
  10. CALCIUM CARBONATE [Concomitant]
  11. SODIUM BICARBONATE [Concomitant]

REACTIONS (3)
  - ANOREXIA [None]
  - BLOOD CREATININE INCREASED [None]
  - NAUSEA [None]
